FAERS Safety Report 11541845 (Version 1)
Quarter: 2015Q3

REPORT INFORMATION
  Report Type: Spontaneous
  Country: US (occurrence: US)
  Receive Date: 20150923
  Receipt Date: 20150923
  Transmission Date: 20151125
  Serious: No
  Sender: FDA-Public Use
  Company Number: US-TARO-2015TAR00039

PATIENT
  Sex: Female
  Weight: 39.2 kg

DRUGS (5)
  1. LORATADINE SYRUP (LORATADINE ORAL SOLUTION USP) 5MG/5ML [Suspect]
     Active Substance: LORATADINE
     Indication: SINUS CONGESTION
     Dosage: 2 TSP, 1X/DAY
     Route: 048
     Dates: start: 20141201
  2. LORATADINE SYRUP (LORATADINE ORAL SOLUTION USP) 5MG/5ML [Suspect]
     Active Substance: LORATADINE
     Indication: MULTIPLE ALLERGIES
  3. MIRALAX [Concomitant]
     Active Substance: POLYETHYLENE GLYCOL 3350
     Dosage: 1 TBSP, 1X/DAY
  4. TRILEPTAL LIQUID [Concomitant]
     Dosage: 2 TBSP, 1X/DAY
  5. PHENOBARBITAL. [Concomitant]
     Active Substance: PHENOBARBITAL
     Dosage: 64.8 MG, 2X/DAY

REACTIONS (2)
  - Flatulence [Not Recovered/Not Resolved]
  - Constipation [Not Recovered/Not Resolved]
